FAERS Safety Report 9395309 (Version 1)
Quarter: 2013Q3

REPORT INFORMATION
  Report Type: Spontaneous
  Country: US (occurrence: US)
  Receive Date: 20130711
  Receipt Date: 20130711
  Transmission Date: 20140515
  Serious: No
  Sender: FDA-Public Use
  Company Number: US-ASTELLAS-2013US006556

PATIENT
  Sex: Female
  Weight: 102 kg

DRUGS (4)
  1. MYRBETRIQ [Suspect]
     Indication: BLADDER DISORDER
     Dosage: 25 MG, UID/QD
     Route: 048
     Dates: start: 201302
  2. AMPYRA [Suspect]
     Indication: GAIT DISTURBANCE
     Dosage: 10 MG, Q12 HOURS
     Dates: start: 20130329
  3. SYNTHROID [Concomitant]
     Indication: PRODUCT USED FOR UNKNOWN INDICATION
     Dosage: UNK
     Route: 065
  4. POTASSIUM CHLORIDE [Concomitant]
     Indication: PRODUCT USED FOR UNKNOWN INDICATION
     Dosage: 10 MEQ, UNKNOWN/D
     Route: 065

REACTIONS (2)
  - Constipation [Not Recovered/Not Resolved]
  - Back pain [Not Recovered/Not Resolved]
